FAERS Safety Report 4336948-6 (Version None)
Quarter: 2004Q1

REPORT INFORMATION
  Report Type: 
  Country: None (occurrence: None)
  Receive Date: 20040329
  Receipt Date: 20040113
  Transmission Date: 20041129
  Serious: No
  Sender: FDA-Public Use
  Company Number: USA040156540

PATIENT
  Sex: Female

DRUGS (2)
  1. STRATTERA [Suspect]
     Indication: ATTENTION DEFICIT/HYPERACTIVITY DISORDER
     Dosage: 80 MG/DAY
  2. STRATTERA [Suspect]
     Indication: DEPRESSION
     Dosage: 80 MG/DAY

REACTIONS (1)
  - PSYCHOMOTOR HYPERACTIVITY [None]
